FAERS Safety Report 10379456 (Version 2)
Quarter: 2014Q4

REPORT INFORMATION
  Report Type: Spontaneous
  Country: JP (occurrence: JP)
  Receive Date: 20140812
  Receipt Date: 20141009
  Transmission Date: 20150528
  Serious: Yes (Hospitalization)
  Sender: FDA-Public Use
  Company Number: JP-LUNDBECK-DKLU1102644

PATIENT
  Age: 53 Year
  Sex: Female

DRUGS (4)
  1. ANTIPARKINSONISM AGENT [Concomitant]
     Indication: PARKINSON^S DISEASE
     Route: 048
  2. DROXIDOPA [Suspect]
     Active Substance: DROXIDOPA
     Indication: PARKINSON^S DISEASE
     Route: 048
  3. PRAMIPEXOLE HYDROCHLORIDE HYDRATE [Concomitant]
     Indication: PARKINSON^S DISEASE
     Route: 048
  4. TRERIEF [Suspect]
     Active Substance: ZONISAMIDE
     Indication: PARKINSON^S DISEASE
     Route: 048

REACTIONS (2)
  - Drug effect decreased [Unknown]
  - Tardive dyskinesia [Unknown]
